FAERS Safety Report 9343462 (Version 1)
Quarter: 2013Q2

REPORT INFORMATION
  Report Type: Spontaneous
  Country: US (occurrence: US)
  Receive Date: 20130612
  Receipt Date: 20130612
  Transmission Date: 20140414
  Serious: Yes (Hospitalization, Other)
  Sender: FDA-Public Use
  Company Number: US-JNJCP-30000164182

PATIENT
  Sex: Male

DRUGS (22)
  1. NEUTROGENA ADVANCED SOLUTIONS COMPLETE ACNE THERAPY SYSTEM [Suspect]
     Indication: ACNE
     Dosage: AS DIRECTED
     Route: 061
  2. NO DRUG NAME [Concomitant]
  3. NO DRUG NAME [Concomitant]
  4. NO DRUG NAME [Concomitant]
  5. NO DRUG NAME [Concomitant]
  6. NO DRUG NAME [Concomitant]
  7. NO DRUG NAME [Concomitant]
  8. NO DRUG NAME [Concomitant]
  9. NO DRUG NAME [Concomitant]
  10. NO DRUG NAME [Concomitant]
  11. NO DRUG NAME [Concomitant]
  12. NO DRUG NAME [Concomitant]
  13. NO DRUG NAME [Concomitant]
  14. NO DRUG NAME [Concomitant]
  15. NO DRUG NAME [Concomitant]
  16. NO DRUG NAME [Concomitant]
  17. NO DRUG NAME [Concomitant]
  18. NO DRUG NAME [Concomitant]
  19. NO DRUG NAME [Concomitant]
  20. NO DRUG NAME [Concomitant]
  21. NEUTROGENA ADVANCED SOLUTIONS COMPLETE ACNE THERAPY SYSTEM [Suspect]
     Indication: ACNE
     Dosage: AS DIRECTED
     Route: 061
  22. NEUTROGENA ADVANCED SOLUTIONS COMPLETE ACNE THERAPY SYSTEM [Suspect]
     Indication: ACNE
     Dosage: AS DIRECTED
     Route: 061

REACTIONS (18)
  - Application site paraesthesia [Recovering/Resolving]
  - Application site vesicles [Recovering/Resolving]
  - Application site pain [Recovering/Resolving]
  - Application site swelling [Recovering/Resolving]
  - Application site pain [Recovering/Resolving]
  - Application site discolouration [Recovering/Resolving]
  - Hypoaesthesia [Recovering/Resolving]
  - Vomiting [Recovering/Resolving]
  - Dyspnoea [Recovering/Resolving]
  - Somnolence [Recovering/Resolving]
  - Asthenia [Recovering/Resolving]
  - Dizziness [Recovering/Resolving]
  - Application site burn [Recovering/Resolving]
  - Back pain [Recovering/Resolving]
  - Headache [Recovering/Resolving]
  - Skin discolouration [Recovering/Resolving]
  - Convulsion [Recovering/Resolving]
  - Product quality issue [Unknown]
